FAERS Safety Report 10411437 (Version 1)
Quarter: 2014Q3

REPORT INFORMATION
  Report Type: Not Available
  Country: US (occurrence: US)
  Receive Date: 20140827
  Receipt Date: 20140827
  Transmission Date: 20150326
  Serious: Yes (Other)
  Sender: FDA-Public Use
  Company Number: US-LUPIN PHARMACEUTICALS INC.-E2B_00002393

PATIENT
  Age: 53 Year
  Sex: Male
  Weight: 106.69 kg

DRUGS (2)
  1. LISINOPRIL AND HYDROCHLOROTHIAZIDE [Suspect]
     Active Substance: HYDROCHLOROTHIAZIDE\LISINOPRIL
     Indication: HYPERTENSION
     Dates: start: 20140808
  2. POTASSIUM [Concomitant]
     Active Substance: POTASSIUM
     Indication: MEDICAL DIET
     Route: 065

REACTIONS (10)
  - Drug ineffective [Unknown]
  - Skin burning sensation [Unknown]
  - Diarrhoea [Unknown]
  - pH urine decreased [Unknown]
  - Skin exfoliation [Unknown]
  - Hypertension [Unknown]
  - Headache [Unknown]
  - Spinal cord compression [Unknown]
  - Abdominal pain upper [Unknown]
  - Heart rate decreased [Unknown]

NARRATIVE: CASE EVENT DATE: 20140810
